FAERS Safety Report 13080973 (Version 2)
Quarter: 2017Q4

REPORT INFORMATION
  Report Type: Spontaneous
  Country: US (occurrence: US)
  Receive Date: 20170103
  Receipt Date: 20171116
  Transmission Date: 20180320
  Serious: No
  Sender: FDA-Public Use
  Company Number: US-BAUSCH-BL-2016-024636

PATIENT
  Sex: Male

DRUGS (2)
  1. XENAZINE [Suspect]
     Active Substance: TETRABENAZINE
     Dosage: GASTROSTOMY TUBE, TAPERED DOSE
     Route: 050
     Dates: start: 2016
  2. XENAZINE [Suspect]
     Active Substance: TETRABENAZINE
     Indication: DYSTONIA
     Dosage: GASTROSTOMY TUBE
     Route: 050
     Dates: start: 20160911

REACTIONS (3)
  - Drug administration error [Unknown]
  - Drug ineffective for unapproved indication [Unknown]
  - Off label use [Unknown]
